FAERS Safety Report 4596615-0 (Version None)
Quarter: 2005Q1

REPORT INFORMATION
  Report Type: 
  Country: None (occurrence: None)
  Receive Date: 20050228
  Receipt Date: 20050215
  Transmission Date: 20050727
  Serious: Yes (Other)
  Sender: FDA-Public Use
  Company Number: 2005032768

PATIENT
  Age: 57 Year
  Sex: Female

DRUGS (1)
  1. ATORVASTATIN CALCIUM [Suspect]
     Indication: HYPERLIPIDAEMIA
     Dates: start: 20021001

REACTIONS (5)
  - EOSINOPHILIA [None]
  - INFLAMMATION [None]
  - NASAL POLYPS [None]
  - OEDEMA [None]
  - SINUS POLYP [None]
